FAERS Safety Report 7441334-6 (Version None)
Quarter: 2011Q2

REPORT INFORMATION
  Report Type: 
  Country: None (occurrence: None)
  Receive Date: 20110415
  Receipt Date: 20110310
  Transmission Date: 20111010
  Serious: Yes (Other)
  Sender: FDA-Public Use
  Company Number: AUR-APL-2011-00988

PATIENT
  Age: 49 Year
  Sex: Female
  Weight: 70.29 kg

DRUGS (4)
  1. CADUET [Suspect]
     Indication: HYPERTENSION
     Dosage: ORAL
     Route: 048
     Dates: end: 20110201
  2. LEXAPRO [Concomitant]
  3. NEXIUM [Concomitant]
  4. METOPROLOL SUCCINATE [Suspect]
     Indication: HYPERTENSION
     Dates: start: 20110201

REACTIONS (7)
  - ECONOMIC PROBLEM [None]
  - DYSPNOEA [None]
  - EXPIRED DRUG ADMINISTERED [None]
  - TREATMENT NONCOMPLIANCE [None]
  - MENTAL IMPAIRMENT [None]
  - BLOOD PRESSURE INCREASED [None]
  - CHOKING SENSATION [None]
